FAERS Safety Report 22933374 (Version 2)
Quarter: 2023Q4

REPORT INFORMATION
  Report Type: Report from Study
  Country: US (occurrence: US)
  Receive Date: 20230912
  Receipt Date: 20231207
  Transmission Date: 20240110
  Serious: Yes (Death, Hospitalization, Other)
  Sender: FDA-Public Use
  Company Number: US-SANDOZ-SDZ2023US017078

PATIENT
  Sex: Female
  Weight: 46.712 kg

DRUGS (4)
  1. TREPROSTINIL [Suspect]
     Active Substance: TREPROSTINIL
     Indication: Pulmonary arterial hypertension
     Dosage: 93 NG/KG/ MIN, CONTINUOUS
     Route: 042
     Dates: start: 20201016
  2. TREPROSTINIL [Suspect]
     Active Substance: TREPROSTINIL
     Dosage: 101 NG/KG/MIN, CONTINUOUS
     Route: 042
     Dates: start: 20201016
  3. ADEMPAS [Concomitant]
     Active Substance: RIOCIGUAT
     Indication: Product used for unknown indication
     Route: 065
  4. AMBRISENTAN [Concomitant]
     Active Substance: AMBRISENTAN
     Indication: Product used for unknown indication
     Route: 065

REACTIONS (2)
  - Death [Fatal]
  - Transfusion [Unknown]
